FAERS Safety Report 5747050-0 (Version None)
Quarter: 2008Q2

REPORT INFORMATION
  Report Type: 
  Country: None (occurrence: None)
  Receive Date: 20080522
  Receipt Date: 20080519
  Transmission Date: 20081010
  Serious: Yes (Other)
  Sender: FDA-Public Use
  Company Number: DE-BOEHRINGER INGELHEIM GMBH, GERMANY-2008-BP-07817RO

PATIENT
  Age: 8 Year
  Sex: Male
  Weight: 27 kg

DRUGS (9)
  1. DEXAMETHASONE TAB [Suspect]
     Indication: PROPHYLAXIS OF NAUSEA AND VOMITING
     Route: 042
  2. FUROSEMIDE [Suspect]
     Indication: PROPHYLAXIS
  3. PROPOFOL [Suspect]
     Indication: INDUCTION OF ANAESTHESIA
     Route: 042
  4. ALFENTANIL [Suspect]
     Indication: INDUCTION OF ANAESTHESIA
     Route: 042
  5. OXYGEN [Suspect]
     Indication: INDUCTION OF ANAESTHESIA
     Route: 039
  6. DESFLURANE [Suspect]
     Indication: MAINTENANCE OF ANAESTHESIA
  7. REMIFENTANIL [Suspect]
     Indication: MAINTENANCE OF ANAESTHESIA
  8. ACETAMINOPHEN [Suspect]
     Indication: PAIN PROPHYLAXIS
     Route: 042
  9. ALLOPURINOL [Concomitant]
     Indication: PROPHYLAXIS

REACTIONS (4)
  - BLOOD CREATININE INCREASED [None]
  - BLOOD LACTATE DEHYDROGENASE INCREASED [None]
  - BLOOD PHOSPHORUS INCREASED [None]
  - TUMOUR LYSIS SYNDROME [None]
